FAERS Safety Report 4319875-X (Version None)
Quarter: 2004Q1

REPORT INFORMATION
  Report Type: 
  Country: None (occurrence: None)
  Receive Date: 20040319
  Receipt Date: 20040310
  Transmission Date: 20041129
  Serious: Yes (Other)
  Sender: FDA-Public Use
  Company Number: PHFR2004GB01394

PATIENT
  Sex: Female

DRUGS (5)
  1. EXELON [Suspect]
     Indication: DEMENTIA ALZHEIMER'S TYPE
     Dosage: 1.5 MG, BID
     Dates: end: 20040309
  2. RISPERIDONE [Concomitant]
     Dates: end: 20040301
  3. LISINOPRIL [Concomitant]
  4. BENDROFLUAZIDE [Concomitant]
  5. LORAZEPAM [Concomitant]

REACTIONS (2)
  - DYSTONIA [None]
  - POSTURE ABNORMAL [None]
